FAERS Safety Report 9402723 (Version 1)
Quarter: 2013Q3

REPORT INFORMATION
  Report Type: Spontaneous
  Country: US (occurrence: None)
  Receive Date: 20130712
  Receipt Date: 20130712
  Transmission Date: 20140515
  Serious: No
  Sender: FDA-Public Use
  Company Number: None

PATIENT
  Age: 77 Year
  Sex: Female

DRUGS (1)
  1. FORTEO 600 MCG LILLY [Suspect]
     Route: 058
     Dates: start: 20130618, end: 20130619

REACTIONS (1)
  - Adverse drug reaction [None]
